FAERS Safety Report 5002018-7 (Version None)
Quarter: 2006Q2

REPORT INFORMATION
  Report Type: 
  Country: None (occurrence: None)
  Receive Date: 20060515
  Receipt Date: 20051205
  Transmission Date: 20061013
  Serious: Yes (Hospitalization, Disabling)
  Sender: FDA-Public Use
  Company Number: US-MERCK-0512USA00824

PATIENT
  Age: 50 Year
  Sex: Male
  Weight: 85 kg

DRUGS (10)
  1. VIOXX [Suspect]
     Indication: SHOULDER PAIN
     Route: 048
     Dates: start: 20010917, end: 20011017
  2. VIOXX [Suspect]
     Route: 048
     Dates: start: 20011227, end: 20020126
  3. VIOXX [Suspect]
     Route: 048
     Dates: start: 20020623, end: 20020623
  4. VIOXX [Suspect]
     Route: 048
     Dates: start: 20020911, end: 20030130
  5. PREVACID [Concomitant]
     Route: 065
  6. GLUCOPHAGE [Concomitant]
     Route: 065
  7. AMBIEN [Concomitant]
     Route: 065
  8. LORATIDINE D [Concomitant]
     Route: 065
  9. ASPIRIN [Concomitant]
     Route: 065
  10. AVANDIA [Concomitant]
     Route: 065

REACTIONS (4)
  - ATELECTASIS [None]
  - CAROTID ARTERY STENOSIS [None]
  - CEREBROVASCULAR ACCIDENT [None]
  - CHRONIC OBSTRUCTIVE PULMONARY DISEASE [None]
